FAERS Safety Report 14778811 (Version 2)
Quarter: 2018Q2

REPORT INFORMATION
  Report Type: Spontaneous
  Country: CN (occurrence: CN)
  Receive Date: 20180419
  Receipt Date: 20180508
  Transmission Date: 20180711
  Serious: Yes (Life-Threatening, Other)
  Sender: FDA-Public Use
  Company Number: CN-ASTRAZENECA-2018SE49168

PATIENT
  Age: 50 Year
  Sex: Male

DRUGS (3)
  1. TAGRISSO [Suspect]
     Active Substance: OSIMERTINIB
     Indication: NEOPLASM
     Route: 048
  2. TAGRISSO [Suspect]
     Active Substance: OSIMERTINIB
     Indication: NEOPLASM
     Route: 048
  3. IRESSA [Suspect]
     Active Substance: GEFITINIB
     Route: 048

REACTIONS (7)
  - Coma [Unknown]
  - Decreased appetite [Unknown]
  - Vomiting [Unknown]
  - Cerebral infarction [Unknown]
  - Malignant neoplasm progression [Unknown]
  - Asthenia [Unknown]
  - Eating disorder [Unknown]
